FAERS Safety Report 18942339 (Version 1)
Quarter: 2021Q1

REPORT INFORMATION
  Report Type: Spontaneous
  Country: US (occurrence: US)
  Receive Date: 20210225
  Receipt Date: 20210225
  Transmission Date: 20210420
  Serious: No
  Sender: FDA-Public Use
  Company Number: US-JUBILANT CADISTA PHARMACEUTICALS-2020JUB00040

PATIENT
  Sex: Female

DRUGS (3)
  1. BLOOD PRESSURE MEDICAITON (UNSPECIFIED) [Suspect]
     Active Substance: UNSPECIFIED INGREDIENT
     Dosage: UNK
  2. VALSARTAN. [Suspect]
     Active Substance: VALSARTAN
     Dosage: UNK
  3. VALSARTAN. [Suspect]
     Active Substance: VALSARTAN
     Dosage: 160 MG; TOOK TWO 80 MG TABLETS TO EQUAL 160 MG

REACTIONS (1)
  - Allergy to chemicals [Not Recovered/Not Resolved]
